FAERS Safety Report 9251308 (Version 1)
Quarter: 2013Q2

REPORT INFORMATION
  Report Type: Spontaneous
  Country: FR (occurrence: FR)
  Receive Date: 20130423
  Receipt Date: 20130423
  Transmission Date: 20140414
  Serious: Yes (Hospitalization, Other)
  Sender: FDA-Public Use
  Company Number: FR-PR/990120/70

PATIENT
  Age: 0 None
  Sex: Male

DRUGS (2)
  1. SUBUTEX [Suspect]
     Indication: DRUG DEPENDENCE
     Dosage: UNKNOWN INTRAVENOUS
     Route: 064
     Dates: end: 19971214
  2. HEROIN [Suspect]
     Indication: DRUG DEPENDENCE
     Dosage: DRUG DETAILS UNKNOWN
     Route: 064

REACTIONS (9)
  - Thrombocytopenia neonatal [Unknown]
  - Jaundice neonatal [Unknown]
  - Feeding disorder neonatal [Recovered/Resolved]
  - Hypertonia neonatal [Unknown]
  - Agitation neonatal [Unknown]
  - Tremor neonatal [Unknown]
  - Foetal exposure during pregnancy [Recovered/Resolved]
  - Drug withdrawal syndrome neonatal [Unknown]
  - Regurgitation [Recovered/Resolved]
